FAERS Safety Report 6521177-8 (Version None)
Quarter: 2009Q4

REPORT INFORMATION
  Report Type: 
  Country: None (occurrence: None)
  Receive Date: 20091222
  Receipt Date: 20091208
  Transmission Date: 20100525
  Serious: Yes (Other)
  Sender: FDA-Public Use
  Company Number: 430016J09USA

PATIENT
  Age: 50 Year
  Sex: Female

DRUGS (1)
  1. NOVANTRONE [Suspect]
     Indication: MULTIPLE SCLEROSIS
     Dosage: 3 CYCLE

REACTIONS (3)
  - BLOOD PRESSURE DECREASED [None]
  - EJECTION FRACTION DECREASED [None]
  - PERIPHERAL COLDNESS [None]
